FAERS Safety Report 24458969 (Version 1)
Quarter: 2024Q4

REPORT INFORMATION
  Report Type: Spontaneous
  Country: ID (occurrence: ID)
  Receive Date: 20241018
  Receipt Date: 20241018
  Transmission Date: 20250115
  Serious: No
  Sender: ROCHE
  Company Number: ID-BoehringerIngelheim-2023-BI-271263

PATIENT
  Age: 75 Year
  Sex: Male
  Weight: 55.0 kg

DRUGS (2)
  1. ALTEPLASE [Suspect]
     Active Substance: ALTEPLASE
     Indication: Pulmonary embolism
     Dosage: OVER 2 HOURS
     Route: 042
  2. ALTEPLASE [Suspect]
     Active Substance: ALTEPLASE
     Dosage: FOLLOWED BY 45 MG IN THE NEXT 22 H
     Route: 042

REACTIONS (1)
  - Haemorrhage [Recovering/Resolving]
